FAERS Safety Report 7469698-8 (Version None)
Quarter: 2011Q2

REPORT INFORMATION
  Report Type: 
  Country: None (occurrence: None)
  Receive Date: 20110510
  Receipt Date: 20110427
  Transmission Date: 20111010
  Serious: Yes (Hospitalization)
  Sender: FDA-Public Use
  Company Number: US-TYCO HEALTHCARE/MALLINCKRODT-T201100865

PATIENT

DRUGS (1)
  1. FENTANYL-100 [Suspect]
     Dosage: 75 UG/HR, SINGLE

REACTIONS (4)
  - LOSS OF CONSCIOUSNESS [None]
  - WRONG TECHNIQUE IN DRUG USAGE PROCESS [None]
  - SUICIDE ATTEMPT [None]
  - RESPIRATORY DEPRESSION [None]
